FAERS Safety Report 6979516-X (Version None)
Quarter: 2010Q3

REPORT INFORMATION
  Report Type: 
  Country: None (occurrence: None)
  Receive Date: 20100910
  Receipt Date: 20100910
  Transmission Date: 20110219
  Serious: Yes (Other)
  Sender: FDA-Public Use
  Company Number: None

PATIENT
  Age: 53 Year
  Sex: Female
  Weight: 74.3899 kg

DRUGS (2)
  1. BOTOX [Suspect]
     Indication: SKIN WRINKLING
     Dates: start: 20070901, end: 20081101
  2. BOTOX [Suspect]
     Indication: SKIN WRINKLING
     Dates: start: 20091101, end: 20091101

REACTIONS (5)
  - DYSPNOEA [None]
  - FORMICATION [None]
  - IMMUNE SYSTEM DISORDER [None]
  - RASH PRURITIC [None]
  - VIRAL INFECTION [None]
